FAERS Safety Report 4872929-1 (Version None)
Quarter: 2006Q1

REPORT INFORMATION
  Report Type: 
  Country: None (occurrence: None)
  Receive Date: 20060105
  Receipt Date: 20050315
  Transmission Date: 20060701
  Serious: No
  Sender: FDA-Public Use
  Company Number: US-BRISTOL-MYERS SQUIBB COMPANY-12898979

PATIENT
  Age: 66 Year
  Sex: Female

DRUGS (3)
  1. SERZONE [Suspect]
     Indication: DEPRESSION
  2. PAXIL [Concomitant]
  3. EFFEXOR [Concomitant]
     Dates: end: 20020101

REACTIONS (9)
  - CHROMATURIA [None]
  - CRYING [None]
  - DEPRESSION [None]
  - DYSPNOEA [None]
  - FATIGUE [None]
  - JAUNDICE [None]
  - LIVER DISORDER [None]
  - RENAL PAIN [None]
  - SUICIDAL IDEATION [None]
